FAERS Safety Report 6336328-8 (Version None)
Quarter: 2009Q3

REPORT INFORMATION
  Report Type: 
  Country: None (occurrence: None)
  Receive Date: 20090901
  Receipt Date: 20090823
  Transmission Date: 20100115
  Serious: Yes (Other)
  Sender: FDA-Public Use
  Company Number: US-AMGEN-QUU361428

PATIENT
  Sex: Female

DRUGS (1)
  1. ENBREL [Suspect]
     Indication: RHEUMATOID ARTHRITIS
     Route: 058
     Dates: start: 20090325

REACTIONS (7)
  - ACCIDENTAL NEEDLE STICK [None]
  - BLOOD IRON DECREASED [None]
  - GASTRIC HAEMORRHAGE [None]
  - HAEMATOCHEZIA [None]
  - NERVE INJURY [None]
  - VESSEL PUNCTURE SITE HAEMATOMA [None]
  - VESSEL PUNCTURE SITE PAIN [None]
